FAERS Safety Report 9477815 (Version 1)
Quarter: 2013Q3

REPORT INFORMATION
  Report Type: Spontaneous
  Country: CN (occurrence: CN)
  Receive Date: 20130827
  Receipt Date: 20130827
  Transmission Date: 20140515
  Serious: Yes (Other)
  Sender: FDA-Public Use
  Company Number: CN-BRISTOL-MYERS SQUIBB COMPANY-19199314

PATIENT
  Age: 80 Year
  Sex: Male
  Weight: 68 kg

DRUGS (4)
  1. METFORMIN HCL [Suspect]
     Indication: DIABETES MELLITUS
     Route: 048
     Dates: start: 20120401, end: 20120406
  2. GLICLAZIDE [Suspect]
     Indication: DIABETES MELLITUS
     Route: 048
     Dates: start: 20120401, end: 20120406
  3. FELODIPINE [Suspect]
     Indication: HYPERTENSION
     Route: 048
     Dates: start: 20120401, end: 20120406
  4. VALSARTAN [Suspect]
     Indication: HYPERTENSION
     Route: 048
     Dates: start: 20120401, end: 20120406

REACTIONS (7)
  - Coma [Recovered/Resolved]
  - Hypoglycaemia [Unknown]
  - Diarrhoea [Unknown]
  - Vomiting [Unknown]
  - Nausea [Unknown]
  - Fatigue [Unknown]
  - Muscular weakness [Unknown]
